FAERS Safety Report 7366805-2 (Version None)
Quarter: 2011Q1

REPORT INFORMATION
  Report Type: 
  Country: None (occurrence: None)
  Receive Date: 20110311
  Receipt Date: 20110303
  Transmission Date: 20110831
  Serious: Yes (Other)
  Sender: FDA-Public Use
  Company Number: 027894

PATIENT
  Sex: Female
  Weight: 52 kg

DRUGS (4)
  1. ERYTHROMYCIN (ERYTHROMYCIN HEXAL) [Suspect]
     Indication: BRONCHITIS
     Dosage: 500 M BID ORAL
     Route: 048
     Dates: start: 20110211
  2. ERYTHROMYCIN (ERYTHROMYCIN HEXAL) [Suspect]
     Indication: INFECTION
     Dosage: 500 M BID ORAL
     Route: 048
     Dates: start: 20110211
  3. KEPPRA [Suspect]
     Indication: CONVULSION
     Dosage: 750 MG BID ORAL
     Route: 048
     Dates: start: 20071101
  4. KEPPRA [Suspect]
     Indication: PARTIAL SEIZURES
     Dosage: 750 MG BID ORAL
     Route: 048
     Dates: start: 20071101

REACTIONS (2)
  - DRUG INTERACTION [None]
  - CONVULSION [None]
